FAERS Safety Report 5263253-6 (Version None)
Quarter: 2007Q1

REPORT INFORMATION
  Report Type: 
  Country: None (occurrence: None)
  Receive Date: 20061219
  Receipt Date: 20061025
  Transmission Date: 20070707
  Serious: No
  Sender: FDA-Public Use
  Company Number: 2006US002173

PATIENT
  Sex: Female

DRUGS (1)
  1. VESICARE [Suspect]
     Indication: BLADDER DISORDER
     Dosage: ORAL
     Route: 048
     Dates: start: 20060901

REACTIONS (3)
  - ANAEMIA [None]
  - EYE HAEMORRHAGE [None]
  - VISION BLURRED [None]
